FAERS Safety Report 19377430 (Version 2)
Quarter: 2021Q2

REPORT INFORMATION
  Report Type: Report from Study
  Country: BE (occurrence: BE)
  Receive Date: 20210604
  Receipt Date: 20210630
  Transmission Date: 20210717
  Serious: Yes (Other)
  Sender: FDA-Public Use
  Company Number: BE-BRISTOL-MYERS SQUIBB COMPANY-BMS-2021-051545

PATIENT
  Age: 51 Year
  Sex: Male

DRUGS (3)
  1. NIVOLUMAB [Suspect]
     Active Substance: NIVOLUMAB
     Dosage: MONOTHERAPY
     Route: 065
     Dates: start: 20210621
  2. NIVOLUMAB [Suspect]
     Active Substance: NIVOLUMAB
     Indication: MALIGNANT MELANOMA
     Dosage: EVERY 3 WEEK, (COMBINATION THERAPY)
     Route: 042
     Dates: start: 20210205
  3. IPILIMUMAB [Suspect]
     Active Substance: IPILIMUMAB
     Indication: MALIGNANT MELANOMA
     Dosage: UNK, Q3WK
     Route: 042
     Dates: start: 20210205, end: 20210621

REACTIONS (16)
  - Weight decreased [Unknown]
  - Fatigue [Unknown]
  - Productive cough [Unknown]
  - Constipation [Unknown]
  - Skin exfoliation [Unknown]
  - Sleep disorder [Unknown]
  - Myalgia [Unknown]
  - Diarrhoea [Unknown]
  - Faeces hard [Unknown]
  - Decreased appetite [Unknown]
  - Back pain [Unknown]
  - Dizziness [Unknown]
  - Dysphagia [Unknown]
  - Taste disorder [Unknown]
  - Tinnitus [Unknown]
  - Dyspnoea exertional [Unknown]

NARRATIVE: CASE EVENT DATE: 20210525
